FAERS Safety Report 16032782 (Version 1)
Quarter: 2019Q1

REPORT INFORMATION
  Report Type: Spontaneous
  Country: US (occurrence: US)
  Receive Date: 20190305
  Receipt Date: 20190305
  Transmission Date: 20190418
  Serious: No
  Sender: FDA-Public Use
  Company Number: US-IMPAX LABORATORIES, LLC-2018-IPXL-02036

PATIENT
  Age: 67 Year
  Sex: Female

DRUGS (4)
  1. RYTARY [Suspect]
     Active Substance: CARBIDOPA\LEVODOPA
     Dosage: 23.75/95 MG, THREE CAPSULES SIX TIMES A DAY
     Route: 048
  2. RYTARY [Suspect]
     Active Substance: CARBIDOPA\LEVODOPA
     Indication: PARKINSON^S DISEASE
     Dosage: 23.75/95 MG, THREE CAPSULES THREE TIMES A DAY
     Route: 048
  3. RYTARY [Suspect]
     Active Substance: CARBIDOPA\LEVODOPA
     Dosage: 23.75/95 MG,FOUR CAPSULES EVERY 2.5 HOUR
     Route: 048
     Dates: start: 201806
  4. RYTARY [Suspect]
     Active Substance: CARBIDOPA\LEVODOPA
     Dosage: 36.25/145 MG, THREE CAPSULES EVERY 3 HOURS FOR APPROX. SIX TIMES A DAY
     Route: 048
     Dates: start: 20180718

REACTIONS (10)
  - Respiratory rate increased [Recovered/Resolved]
  - Therapeutic response shortened [Not Recovered/Not Resolved]
  - Dyspnoea [Unknown]
  - Drug ineffective [Unknown]
  - Dyskinesia [Recovered/Resolved]
  - Drug effect variable [Unknown]
  - Anxiety [Recovered/Resolved]
  - Inappropriate schedule of product administration [Unknown]
  - Prescribed overdose [Unknown]
  - Asthenia [Recovered/Resolved]
